FAERS Safety Report 5960836-2 (Version None)
Quarter: 2008Q4

REPORT INFORMATION
  Report Type: 
  Country: None (occurrence: None)
  Receive Date: 20081112
  Receipt Date: 20080611
  Transmission Date: 20090506
  Serious: Yes (Hospitalization)
  Sender: FDA-Public Use
  Company Number: 2008S1000205

PATIENT

DRUGS (1)
  1. CUBICIN [Suspect]
     Indication: WOUND INFECTION
     Dosage: 4 MG/KG; Q24H; IV
     Route: 042

REACTIONS (1)
  - EOSINOPHILIC PNEUMONIA [None]
